FAERS Safety Report 12359280 (Version 1)
Quarter: 2016Q2

REPORT INFORMATION
  Report Type: Spontaneous
  Country: US (occurrence: US)
  Receive Date: 20160512
  Receipt Date: 20160512
  Transmission Date: 20160815
  Serious: Yes (Other)
  Sender: FDA-Public Use
  Company Number: US-NOVOPROD-491019

PATIENT
  Age: 73 Year
  Sex: Male

DRUGS (1)
  1. TRESIBA FLEXTOUCH U200 [Suspect]
     Active Substance: INSULIN DEGLUDEC
     Indication: TYPE 2 DIABETES MELLITUS
     Dosage: 60 U, QD
     Route: 058
     Dates: start: 20160429

REACTIONS (4)
  - Neoplasm malignant [Unknown]
  - Hypertension [Unknown]
  - Blood glucose increased [Unknown]
  - Tremor [Not Recovered/Not Resolved]

NARRATIVE: CASE EVENT DATE: 201604
